FAERS Safety Report 16705655 (Version 1)
Quarter: 2019Q3

REPORT INFORMATION
  Report Type: Spontaneous
  Country: US (occurrence: US)
  Receive Date: 20190815
  Receipt Date: 20190815
  Transmission Date: 20191004
  Serious: Yes (Other)
  Sender: FDA-Public Use
  Company Number: US-ROCHE-2368601

PATIENT
  Age: 91 Year
  Sex: Male
  Weight: 88.53 kg

DRUGS (1)
  1. RITUXAN [Suspect]
     Active Substance: RITUXIMAB
     Indication: IMMUNE THROMBOCYTOPENIC PURPURA
     Dosage: ONGOING: NO
     Route: 065
     Dates: start: 20190614

REACTIONS (5)
  - Asthenia [Not Recovered/Not Resolved]
  - Rash [Unknown]
  - Off label use [Unknown]
  - Ischaemic stroke [Recovered/Resolved]
  - Intentional product use issue [Unknown]

NARRATIVE: CASE EVENT DATE: 20190614
